FAERS Safety Report 11407985 (Version 1)
Quarter: 2015Q3

REPORT INFORMATION
  Report Type: Spontaneous
  Country: US (occurrence: US)
  Receive Date: 20150821
  Receipt Date: 20150821
  Transmission Date: 20151125
  Serious: No
  Sender: FDA-Public Use
  Company Number: US-NOVOPROD-437603

PATIENT
  Age: 68 Year
  Sex: Female

DRUGS (2)
  1. VICTOZA [Suspect]
     Active Substance: LIRAGLUTIDE
     Dosage: 1.2 MG, QD
     Route: 058
  2. VICTOZA [Suspect]
     Active Substance: LIRAGLUTIDE
     Indication: TYPE 2 DIABETES MELLITUS
     Dosage: 0.6 MG, QD
     Route: 058

REACTIONS (13)
  - Infection [Not Recovered/Not Resolved]
  - Diarrhoea [Not Recovered/Not Resolved]
  - Vomiting [Not Recovered/Not Resolved]
  - Fatigue [Unknown]
  - Decreased appetite [Not Recovered/Not Resolved]
  - Abdominal pain upper [Not Recovered/Not Resolved]
  - Dysphagia [Unknown]
  - Impaired gastric emptying [Not Recovered/Not Resolved]
  - Influenza [Not Recovered/Not Resolved]
  - Discomfort [Unknown]
  - Nausea [Not Recovered/Not Resolved]
  - Hyperhidrosis [Unknown]
  - Constipation [Not Recovered/Not Resolved]
